FAERS Safety Report 5211707-0 (Version None)
Quarter: 2007Q1

REPORT INFORMATION
  Report Type: 
  Country: None (occurrence: None)
  Receive Date: 20070118
  Receipt Date: 20070108
  Transmission Date: 20070707
  Serious: Yes (Other)
  Sender: FDA-Public Use
  Company Number: US-BRISTOL-MYERS SQUIBB COMPANY-13636469

PATIENT

DRUGS (1)
  1. COUMADIN [Suspect]
     Indication: CARDIOVASCULAR DISORDER

REACTIONS (5)
  - ANOREXIA [None]
  - DEHYDRATION [None]
  - GASTRIC ULCER HAEMORRHAGE [None]
  - NAUSEA [None]
  - WEIGHT DECREASED [None]
